FAERS Safety Report 8177642-3 (Version None)
Quarter: 2012Q1

REPORT INFORMATION
  Report Type: 
  Country: None (occurrence: None)
  Receive Date: 20120301
  Receipt Date: 20120223
  Transmission Date: 20120608
  Serious: Yes (Other)
  Sender: FDA-Public Use
  Company Number: PHHY2012CA016034

PATIENT
  Sex: Female

DRUGS (1)
  1. ZOLEDRONOC ACID [Suspect]
     Indication: OSTEOPOROSIS
     Route: 042
     Dates: start: 20110413

REACTIONS (5)
  - EYE INFLAMMATION [None]
  - EYELID MARGIN CRUSTING [None]
  - VISUAL IMPAIRMENT [None]
  - INFLUENZA LIKE ILLNESS [None]
  - OCULAR HYPERAEMIA [None]
